FAERS Safety Report 10957687 (Version 1)
Quarter: 2015Q1

REPORT INFORMATION
  Report Type: Spontaneous
  Country: GR (occurrence: GR)
  Receive Date: 20150326
  Receipt Date: 20150326
  Transmission Date: 20150721
  Serious: Yes (Life-Threatening, Hospitalization, Other)
  Sender: FDA-Public Use
  Company Number: GR-ASTRAZENECA-2015SE25849

PATIENT
  Age: 90 Month
  Sex: Female
  Weight: 20 kg

DRUGS (4)
  1. ARIMIDEX [Suspect]
     Active Substance: ANASTROZOLE
     Indication: PRECOCIOUS PUBERTY
     Dosage: PROBABLY DISSOLVED IN FOOD, 1 MG EVERY DAY
     Route: 048
     Dates: start: 201412, end: 20150126
  2. ARIMIDEX [Suspect]
     Active Substance: ANASTROZOLE
     Indication: BODY HEIGHT BELOW NORMAL
     Dosage: PROBABLY DISSOLVED IN FOOD, 1 MG EVERY DAY
     Route: 048
     Dates: start: 201412, end: 20150126
  3. SALBUTAMOL [Concomitant]
     Active Substance: ALBUTEROL
     Indication: RESPIRATORY TRACT INFECTION
     Dates: start: 20150123, end: 20150124
  4. FLUTICASONE [Concomitant]
     Active Substance: FLUTICASONE\FLUTICASONE PROPIONATE
     Indication: RESPIRATORY TRACT INFECTION
     Dates: start: 20150123, end: 20150124

REACTIONS (16)
  - Viral infection [Recovered/Resolved]
  - Unevaluable event [Unknown]
  - Headache [Recovered/Resolved]
  - Immunosuppression [Not Recovered/Not Resolved]
  - Poor peripheral circulation [Unknown]
  - Autonomic nervous system imbalance [Unknown]
  - Moraxella test positive [Unknown]
  - Dizziness [Recovered/Resolved]
  - Pyrexia [Recovered/Resolved]
  - Blood urea increased [Unknown]
  - Blood phosphorus increased [Unknown]
  - Encephalitis influenzal [Recovered/Resolved]
  - Status epilepticus [Recovered/Resolved]
  - Product use issue [Unknown]
  - Respiratory failure [Unknown]
  - Heart rate increased [Unknown]

NARRATIVE: CASE EVENT DATE: 201412
